FAERS Safety Report 8120552-8 (Version None)
Quarter: 2012Q1

REPORT INFORMATION
  Report Type: 
  Country: None (occurrence: None)
  Receive Date: 20120207
  Receipt Date: 20120201
  Transmission Date: 20120608
  Serious: Yes (Hospitalization, Other)
  Sender: FDA-Public Use
  Company Number: DK-PFIZER INC-9829027

PATIENT
  Age: 49 Year
  Sex: Female
  Weight: 84 kg

DRUGS (5)
  1. IBUPROFEN [Concomitant]
     Route: 048
  2. ALPRAZOLAM [Concomitant]
     Dosage: UNK
     Route: 048
     Dates: start: 19960101
  3. SERTRALINE HYDROCHLORIDE [Suspect]
     Indication: DEPRESSION
  4. PIVAMPICILLIN [Concomitant]
     Route: 048
     Dates: start: 19980804, end: 19980810
  5. SERTRALINE HYDROCHLORIDE [Suspect]
     Indication: ANXIETY
     Dosage: 50MG DAILY
     Route: 048
     Dates: start: 19940101, end: 19980812

REACTIONS (2)
  - URINARY RETENTION [None]
  - DIABETES INSIPIDUS [None]
